FAERS Safety Report 9801965 (Version 1)
Quarter: 2014Q1

REPORT INFORMATION
  Report Type: Spontaneous
  Country: US (occurrence: US)
  Receive Date: 20140107
  Receipt Date: 20140107
  Transmission Date: 20141002
  Serious: Yes (Death, Hospitalization, Other)
  Sender: FDA-Public Use
  Company Number: US-UCBSA-108347

PATIENT
  Age: 53 Year
  Sex: Female

DRUGS (7)
  1. ACETAMINOPHEN /HYDROCODONE [Suspect]
     Dosage: ROUTE: INGESTION
     Route: 048
  2. VENLAFAXINE [Suspect]
     Dosage: ROUTE: INGESTION
     Route: 048
  3. GABAPENTIN [Suspect]
     Dosage: ROUTE: INGESTION
     Route: 048
  4. HYDROXYZINE [Suspect]
     Dosage: ROUTE: INGESTION
     Route: 048
  5. HYDROMORPHONE [Suspect]
     Dosage: ROUTE: INGESTION
     Route: 048
  6. MECLIZINE [Suspect]
     Dosage: ROUTE: INGESTION
     Route: 048
  7. LORAZEPAM [Suspect]
     Dosage: ROUTE: INGESTION
     Route: 048

REACTIONS (1)
  - Completed suicide [Fatal]
